FAERS Safety Report 20018215 (Version 1)
Quarter: 2021Q4

REPORT INFORMATION
  Report Type: Spontaneous
  Country: JO (occurrence: JO)
  Receive Date: 20211101
  Receipt Date: 20211101
  Transmission Date: 20220304
  Serious: Yes (Other)
  Sender: FDA-Public Use
  Company Number: JO-LUPIN PHARMACEUTICALS INC.-2021-20964

PATIENT
  Age: 12 Year
  Sex: Male

DRUGS (2)
  1. VANCOMYCIN [Suspect]
     Active Substance: VANCOMYCIN
     Indication: Arthritis bacterial
     Dosage: UNK (INITIAL DOSE UNKNOWN; LATER TITRATED TO 400 MG EVERY 6 HOURS AIMING TO ACHIEVE A SERUM TROUGH L
     Route: 042
  2. VANCOMYCIN [Suspect]
     Active Substance: VANCOMYCIN
     Dosage: 400 MILLIGRAM, QID (EVERY 6 HOURS)
     Route: 042

REACTIONS (1)
  - Hypokalaemia [Recovered/Resolved]
